FAERS Safety Report 6409752-2 (Version None)
Quarter: 2009Q4

REPORT INFORMATION
  Report Type: 
  Country: None (occurrence: None)
  Receive Date: 20091022
  Receipt Date: 20091019
  Transmission Date: 20100525
  Serious: Yes (Death)
  Sender: FDA-Public Use
  Company Number: PHEH2009US14144

PATIENT
  Sex: Male

DRUGS (8)
  1. EXJADE [Suspect]
     Indication: PROSTATE CANCER
     Dosage: 500 MG, BID
     Route: 048
     Dates: start: 20090807
  2. FENTANYL-100 [Concomitant]
  3. ZOMETA [Concomitant]
  4. LASIX [Concomitant]
  5. PROZAC [Concomitant]
  6. ELIGARD [Concomitant]
  7. TAXOL [Concomitant]
  8. CALCIUM [Concomitant]

REACTIONS (1)
  - DEATH [None]
